FAERS Safety Report 9396308 (Version 1)
Quarter: 2013Q3

REPORT INFORMATION
  Report Type: Spontaneous
  Country: US (occurrence: None)
  Receive Date: 20130708
  Receipt Date: 20130708
  Transmission Date: 20140515
  Serious: Yes (Other)
  Sender: FDA-Public Use
  Company Number: 2011-345

PATIENT
  Age: 86 Year
  Sex: Female

DRUGS (2)
  1. PRIALT [Suspect]
     Dosage: UG, ONCE/HOUR, INTRATHECAL
     Route: 037
  2. CLONIDINE HCL (CLONIDINE HYDROCHLORIDE) INJECTION [Suspect]
     Dosage: UG, ONCE/HOUR, INTRATHECAL
     Route: 037

REACTIONS (4)
  - Spinal cord compression [None]
  - Device issue [None]
  - Granuloma [None]
  - Muscular weakness [None]
